FAERS Safety Report 18829400 (Version 1)
Quarter: 2021Q1

REPORT INFORMATION
  Report Type: Spontaneous
  Country: US (occurrence: US)
  Receive Date: 20210201
  Receipt Date: 20210201
  Transmission Date: 20210419
  Serious: No
  Sender: FDA-Public Use
  Company Number: US-ABBVIE-20K-163-3521427-00

PATIENT
  Sex: Female

DRUGS (1)
  1. HUMIRA [Suspect]
     Active Substance: ADALIMUMAB
     Indication: PRODUCT USED FOR UNKNOWN INDICATION
     Route: 058

REACTIONS (6)
  - Ankylosing spondylitis [Unknown]
  - Exposure to SARS-CoV-2 [Unknown]
  - Unevaluable event [Unknown]
  - Drug ineffective [Unknown]
  - Anxiety [Unknown]
  - Arthralgia [Unknown]
